FAERS Safety Report 5874055-1 (Version None)
Quarter: 2008Q3

REPORT INFORMATION
  Report Type: 
  Country: None (occurrence: None)
  Receive Date: 20080908
  Receipt Date: 20080901
  Transmission Date: 20090109
  Serious: Yes (Other)
  Sender: FDA-Public Use
  Company Number: ES-AVENTIS-200818277GDDC

PATIENT
  Age: 43 Year
  Sex: Female

DRUGS (3)
  1. ARAVA [Suspect]
     Indication: RHEUMATOID ARTHRITIS
     Route: 048
     Dates: start: 20080124, end: 20080305
  2. TRIAGYNON [Concomitant]
     Indication: CONTRACEPTION
     Route: 048
     Dates: start: 20060101
  3. METOTREXATE [Concomitant]
     Indication: RHEUMATOID ARTHRITIS
     Dates: start: 20070901, end: 20080101

REACTIONS (1)
  - VAGINAL HAEMORRHAGE [None]
